FAERS Safety Report 12890778 (Version 1)
Quarter: 2016Q4

REPORT INFORMATION
  Report Type: Spontaneous
  Country: US (occurrence: US)
  Receive Date: 20161025
  Receipt Date: 20161025
  Transmission Date: 20170207
  Serious: No
  Sender: FDA-Public Use
  Company Number: None

PATIENT
  Age: 85 Year
  Sex: Female

DRUGS (1)
  1. ENBREL [Suspect]
     Active Substance: ETANERCEPT
     Route: 058
     Dates: start: 20161007, end: 20161007

REACTIONS (6)
  - Vomiting [None]
  - Injection site discomfort [None]
  - Malaise [None]
  - Dizziness [None]
  - Rash [None]
  - Abasia [None]

NARRATIVE: CASE EVENT DATE: 20161007
